FAERS Safety Report 4934054-0 (Version None)
Quarter: 2006Q1

REPORT INFORMATION
  Report Type: 
  Country: None (occurrence: None)
  Receive Date: 20060303
  Receipt Date: 20060125
  Transmission Date: 20060701
  Serious: Yes (Death, Other)
  Sender: FDA-Public Use
  Company Number: 2006014725

PATIENT
  Age: 72 Year
  Sex: Male

DRUGS (1)
  1. DOXAZOSIN (DOXAZOSIN) [Suspect]
     Indication: BENIGN PROSTATIC HYPERPLASIA
     Dosage: 4 MG (4 MG, QD), ORAL
     Route: 048
     Dates: start: 20031101

REACTIONS (4)
  - HYPERSENSITIVITY [None]
  - MALIGNANT NEOPLASM PROGRESSION [None]
  - OESOPHAGEAL CARCINOMA [None]
  - PROSTATE CANCER [None]
